FAERS Safety Report 4663030-0 (Version None)
Quarter: 2005Q2

REPORT INFORMATION
  Report Type: 
  Country: None (occurrence: None)
  Receive Date: 20050513
  Receipt Date: 20050504
  Transmission Date: 20051028
  Serious: Yes (Hospitalization)
  Sender: FDA-Public Use
  Company Number: HQWYE557605MAY05

PATIENT
  Age: 95 Year
  Sex: Female

DRUGS (7)
  1. CORDARONE [Suspect]
     Indication: ATRIAL FIBRILLATION
     Dosage: 200 MG 5 X PER 1 WK
     Route: 048
     Dates: start: 20050220, end: 20050305
  2. DIGOXIN [Suspect]
     Indication: ATRIAL FIBRILLATION
     Dosage: 1 UNIT 1 X PER 1 DAY
     Route: 048
     Dates: start: 20050220, end: 20050305
  3. FERROUS SULFATE TAB [Concomitant]
  4. LORAZEPAM [Concomitant]
  5. NITROGLYCERIN [Concomitant]
  6. XANAX [Concomitant]
  7. FUROSEMIDE [Concomitant]

REACTIONS (6)
  - BRADYCARDIA [None]
  - DEHYDRATION [None]
  - DRUG INTERACTION [None]
  - HYPOKALAEMIA [None]
  - SYNCOPE [None]
  - THERAPEUTIC AGENT TOXICITY [None]
